FAERS Safety Report 5007758-1 (Version None)
Quarter: 2006Q2

REPORT INFORMATION
  Report Type: 
  Country: None (occurrence: None)
  Receive Date: 20060518
  Receipt Date: 20060517
  Transmission Date: 20061013
  Serious: Yes (Other)
  Sender: FDA-Public Use
  Company Number: 20060007USST

PATIENT
  Age: 52 Year
  Sex: Male

DRUGS (7)
  1. NATULAN (PROCARBAZINE HYDROCHLORIDE) CAPSULES [Suspect]
     Indication: HODGKIN'S DISEASE
     Dates: start: 20060110, end: 20060130
  2. NEUPOGEN [Suspect]
     Indication: HODGKIN'S DISEASE
     Dates: start: 20060201
  3. PREDNISONE [Concomitant]
  4. CYCLOPHOSPHAMIDE [Concomitant]
  5. DOXORUBICIN HYDROCHLORIDE [Concomitant]
  6. ETOPOSOD [Concomitant]
  7. NEUPOGEN [Concomitant]

REACTIONS (1)
  - MYOCARDIAL INFARCTION [None]
